FAERS Safety Report 9821318 (Version 1)
Quarter: 2014Q1

REPORT INFORMATION
  Report Type: Spontaneous
  Country: US (occurrence: None)
  Receive Date: 20140114
  Receipt Date: 20140114
  Transmission Date: 20141002
  Serious: Yes (Death)
  Sender: FDA-Public Use
  Company Number: 2014AP000160

PATIENT
  Age: 45 Year
  Sex: Female
  Weight: 96 kg

DRUGS (1)
  1. FERRIPROX [Suspect]
     Indication: SICKLE CELL ANAEMIA
     Route: 048
     Dates: start: 20130606

REACTIONS (1)
  - Death [None]
